FAERS Safety Report 9203798 (Version 1)
Quarter: 2013Q1

REPORT INFORMATION
  Report Type: Spontaneous
  Country: US (occurrence: None)
  Receive Date: 20120709
  Receipt Date: 20120709
  Transmission Date: 20140127
  Serious: No
  Sender: FDA-Public Use
  Company Number: 2012HGS-003548

PATIENT
  Age: 48 Year
  Sex: Female

DRUGS (10)
  1. BENLYSTA [Suspect]
     Indication: SYSTEMIC LUPUS ERYTHEMATOSUS
     Route: 041
     Dates: start: 20120329, end: 20120425
  2. PLAQUENIL (HYDROXYCHLOROQUINE SULFATE) (HYDROXYCHLOROQUINE SULFATE) [Concomitant]
  3. LYRICA (PREGABALIN) (PREGABALIN) [Concomitant]
  4. CALCIUM (CALCIUM) (CALCIUM) [Concomitant]
  5. VITAMIN D (ERGOCALCIFEROL) (ERGOCALCIFEROL) [Concomitant]
  6. VITAMIN C (ASCORBIC ACID) (ASCORBIC ACID) [Concomitant]
  7. PROBIOTIC (BIFIDOBACTERIUM LACTIS) (BIFIDOBACTERIUM LACTIS) [Concomitant]
  8. ECHINACEA (ECHINACEA PURPUREA) (ECHINACEA PURPUREA) [Concomitant]
  9. OMEGA 3 (FISH OIL) (FISH OIL) [Concomitant]
  10. MULTIVITAMIN (VIGRAN) (ERGOCALCIFEROL, ASCORBIC ACID, PYRIDOXINE HYDROCHLORIDE, THIAMINE HYDROCHLORIDE, RETINOL, RIBOFLAVIN, NICOTINAMIDE, CALCIUM PANTOTHENATE) [Concomitant]

REACTIONS (21)
  - Memory impairment [None]
  - Swelling face [None]
  - Facial pain [None]
  - Joint swelling [None]
  - Abdominal pain upper [None]
  - Asthenia [None]
  - Rhinorrhoea [None]
  - Acne [None]
  - Local swelling [None]
  - Diarrhoea [None]
  - Insomnia [None]
  - Oropharyngeal pain [None]
  - Headache [None]
  - Anxiety [None]
  - Pollakiuria [None]
  - Arthralgia [None]
  - Arthralgia [None]
  - Arthralgia [None]
  - Pain in extremity [None]
  - Pain in extremity [None]
  - Pain in extremity [None]
